FAERS Safety Report 5672672-5 (Version None)
Quarter: 2008Q1

REPORT INFORMATION
  Report Type: 
  Country: None (occurrence: None)
  Receive Date: 20080319
  Receipt Date: 20080124
  Transmission Date: 20080703
  Serious: No
  Sender: FDA-Public Use
  Company Number: US-KINGPHARMUSA00001-K200800137

PATIENT

DRUGS (2)
  1. ALTACE [Suspect]
     Dosage: 2.5 MG, UNK
     Dates: start: 20070101
  2. VERAPAMIL [Concomitant]

REACTIONS (2)
  - PAIN IN EXTREMITY [None]
  - SWOLLEN TONGUE [None]
